FAERS Safety Report 20589531 (Version 1)
Quarter: 2022Q1

REPORT INFORMATION
  Report Type: Spontaneous
  Country: US (occurrence: US)
  Receive Date: 20220314
  Receipt Date: 20220314
  Transmission Date: 20220424
  Serious: Yes (Other)
  Sender: FDA-Public Use
  Company Number: US-CHEPLA-2022001353

PATIENT
  Sex: Male
  Weight: 82.599 kg

DRUGS (15)
  1. CLONAZEPAM [Suspect]
     Active Substance: CLONAZEPAM
     Dosage: 1 DF, DAILY AT BEDTIME
     Route: 048
     Dates: end: 20191104
  2. ASPIRIN [Concomitant]
     Active Substance: ASPIRIN
     Dosage: 81 MG, DAILY
     Route: 048
  3. ZYRTEC [Concomitant]
     Active Substance: CETIRIZINE HYDROCHLORIDE
     Dosage: UNK MG
     Route: 065
  4. PERIDEX [Concomitant]
     Active Substance: CHLORHEXIDINE GLUCONATE
     Dosage: 15 ML, RINSE MOUTH FOR 30 SECONDS AM AND PM
     Route: 065
  5. VITAMIN D3 [Concomitant]
     Active Substance: CHOLECALCIFEROL
     Dosage: UNK, DAILY
     Route: 048
  6. DEXTRAN 70;HYPROMELLOSE [Concomitant]
     Dosage: UNK, ADMINISTER INTO AFFECTED EYE
     Route: 065
  7. PROSCAR [Concomitant]
     Active Substance: FINASTERIDE
     Dosage: 5 MG, DAILY
     Route: 048
  8. FLUAD NOS [Concomitant]
     Active Substance: INFLUENZA VIRUS VACCINE
     Dosage: 45 UG, TID (15MCGX3)
     Route: 030
     Dates: start: 2018, end: 2019
  9. EFUDEX [Concomitant]
     Active Substance: FLUOROURACIL
     Dosage: UNK, BID FOR 2 TO 4 WEEKS
     Route: 061
     Dates: end: 20210601
  10. ATROVENT [Concomitant]
     Active Substance: IPRATROPIUM BROMIDE
     Dosage: 21 UG, TID, 2 SPRAYS INTO EACH NOSTRILS
     Route: 045
  11. LOPRESSOR [Concomitant]
     Active Substance: METOPROLOL TARTRATE
     Dosage: 25 MG, BID
     Route: 048
  12. ALTACE [Concomitant]
     Active Substance: RAMIPRIL
     Dosage: 5 MG, BID TOTAL
     Route: 048
  13. ZOCOR [Concomitant]
     Active Substance: SIMVASTATIN
     Dosage: 40 MG, DAILY
     Route: 048
  14. SODIUM FLUORIDE [Concomitant]
     Active Substance: SODIUM FLUORIDE
     Dosage: UNK, PRN
     Route: 065
  15. FLOMAX [Concomitant]
     Active Substance: TAMSULOSIN HYDROCHLORIDE
     Dosage: 1 DF, DAILY
     Route: 065

REACTIONS (7)
  - Deafness [Unknown]
  - Anaemia [Unknown]
  - Cough [Unknown]
  - Breast pain [Unknown]
  - Vitamin D deficiency [Unknown]
  - Chest pain [Unknown]
  - Laboratory test abnormal [Unknown]
